FAERS Safety Report 5722436-9 (Version None)
Quarter: 2008Q2

REPORT INFORMATION
  Report Type: 
  Country: None (occurrence: None)
  Receive Date: 20080429
  Receipt Date: 20070720
  Transmission Date: 20081010
  Serious: No
  Sender: FDA-Public Use
  Company Number: US-ASTRAZENECA-2007UW17202

PATIENT
  Age: 65 Year
  Sex: Male
  Weight: 90.7 kg

DRUGS (6)
  1. NEXIUM [Suspect]
     Indication: GASTROOESOPHAGEAL REFLUX DISEASE
     Route: 048
     Dates: start: 20030101, end: 20070101
  2. NEXIUM [Suspect]
     Route: 048
     Dates: start: 20070101
  3. FISH OIL [Concomitant]
  4. CENTRUM VITAMINS [Concomitant]
  5. VITAMIN E [Concomitant]
  6. NIACIN [Concomitant]

REACTIONS (4)
  - CHEST DISCOMFORT [None]
  - DIAPHRAGMATIC DISORDER [None]
  - DRUG INEFFECTIVE [None]
  - GASTROOESOPHAGEAL REFLUX DISEASE [None]
